FAERS Safety Report 18371678 (Version 4)
Quarter: 2021Q2

REPORT INFORMATION
  Report Type: Spontaneous
  Country: US (occurrence: US)
  Receive Date: 20201012
  Receipt Date: 20210629
  Transmission Date: 20210717
  Serious: Yes (Hospitalization, Other)
  Sender: FDA-Public Use
  Company Number: US-PFIZER INC-2020385473

PATIENT
  Age: 34 Year
  Sex: Male

DRUGS (2)
  1. BENEFIX [Suspect]
     Active Substance: COAGULATION FACTOR IX RECOMBINANT HUMAN\ISOPROPYL ALCOHOL
     Indication: COAGULOPATHY
     Dosage: UNK
  2. BENEFIX [Suspect]
     Active Substance: COAGULATION FACTOR IX RECOMBINANT HUMAN\ISOPROPYL ALCOHOL
     Indication: HAEMORRHAGE
     Dosage: 8000 IU (INFUSE 8000 UNITS AS DIRECTED FOR ACUTE BLEED)

REACTIONS (3)
  - Haemorrhage [Unknown]
  - Product dose omission issue [Unknown]
  - Therapeutic product effect decreased [Unknown]
